FAERS Safety Report 13466524 (Version 2)
Quarter: 2017Q3

REPORT INFORMATION
  Report Type: Report from Study
  Country: PK (occurrence: PK)
  Receive Date: 20170421
  Receipt Date: 20170725
  Transmission Date: 20171127
  Serious: Yes (Other)
  Sender: FDA-Public Use
  Company Number: PHHY2017PK057072

PATIENT
  Age: 68 Year
  Sex: Male
  Weight: 65 kg

DRUGS (2)
  1. AFINITOR [Suspect]
     Active Substance: EVEROLIMUS
     Indication: NEUROENDOCRINE TUMOUR
     Dosage: 10 MG, QD
     Route: 048
     Dates: start: 20160728, end: 20170413
  2. AFINITOR [Suspect]
     Active Substance: EVEROLIMUS
     Dosage: 5 MG, QD
     Route: 048
     Dates: start: 20170413, end: 20170628

REACTIONS (3)
  - Malignant neoplasm progression [Unknown]
  - Neuroendocrine tumour [Unknown]
  - Oral mucosal blistering [Not Recovered/Not Resolved]

NARRATIVE: CASE EVENT DATE: 20170413
